FAERS Safety Report 5838151-7 (Version None)
Quarter: 2008Q3

REPORT INFORMATION
  Report Type: 
  Country: None (occurrence: None)
  Receive Date: 20080808
  Receipt Date: 20080729
  Transmission Date: 20090109
  Serious: Yes (Other)
  Sender: FDA-Public Use
  Company Number: DE-BAYER-200823369GPV

PATIENT
  Age: 67 Year
  Sex: Male

DRUGS (2)
  1. TRASYLOL [Suspect]
     Indication: ARTERIAL OCCLUSIVE DISEASE
     Route: 065
     Dates: start: 20040101
  2. TRASYLOL [Suspect]
     Route: 065
     Dates: start: 20070101

REACTIONS (1)
  - ANAPHYLACTIC REACTION [None]
